FAERS Safety Report 5361347-8 (Version None)
Quarter: 2007Q2

REPORT INFORMATION
  Report Type: 
  Country: None (occurrence: None)
  Receive Date: 20070612
  Receipt Date: 20070530
  Transmission Date: 20071010
  Serious: Yes (Hospitalization, Other)
  Sender: FDA-Public Use
  Company Number: SPV1-2006-00039

PATIENT
  Age: 39 Year
  Sex: Male

DRUGS (7)
  1. PENTASA [Suspect]
     Indication: COLITIS ULCERATIVE
     Dosage: 4 G
  2. MESALAZINE(MESALAZINE) TOPICAL SOLUTION [Suspect]
     Indication: COLITIS ULCERATIVE
     Dosage: 1G, 2X/DAY:BID, RECTAL
     Route: 054
  3. METHYLPREDNISOLONE [Concomitant]
  4. HEPARIN LMW (DALTEPARIN SODIUM) [Concomitant]
  5. CALCIUM (CALCIUM) [Concomitant]
  6. VITAMIN D /00318501/ (COLECALCIFEROL) [Concomitant]
  7. ENTERAL NUTRITION [Concomitant]

REACTIONS (15)
  - ALPHA-1 ACID GLYCOPROTEIN INCREASED [None]
  - C-REACTIVE PROTEIN INCREASED [None]
  - CARDIAC MURMUR [None]
  - CARDIOMEGALY [None]
  - CHEST DISCOMFORT [None]
  - COMPUTERISED TOMOGRAM ABNORMAL [None]
  - DILATATION VENTRICULAR [None]
  - GASTROINTESTINAL DISORDER [None]
  - LEFT VENTRICULAR DYSFUNCTION [None]
  - MITRAL VALVE INCOMPETENCE [None]
  - MYOPERICARDITIS [None]
  - PERICARDITIS [None]
  - PYREXIA [None]
  - TACHYCARDIA [None]
  - TROPONIN T INCREASED [None]
